FAERS Safety Report 24303905 (Version 3)
Quarter: 2025Q3

REPORT INFORMATION
  Report Type: Spontaneous
  Country: US (occurrence: US)
  Receive Date: 20240910
  Receipt Date: 20250818
  Transmission Date: 20251020
  Serious: Yes (Other)
  Sender: PFIZER
  Company Number: US-PFIZER INC-202400074314

PATIENT
  Age: 71 Year
  Sex: Female
  Weight: 59.864 kg

DRUGS (12)
  1. IBRANCE [Suspect]
     Active Substance: PALBOCICLIB
     Indication: Breast cancer female
     Dates: start: 20240229
  2. IBRANCE [Suspect]
     Active Substance: PALBOCICLIB
     Indication: Neoplasm malignant
     Route: 048
     Dates: start: 20240328
  3. IBRANCE [Suspect]
     Active Substance: PALBOCICLIB
  4. IBRANCE [Suspect]
     Active Substance: PALBOCICLIB
     Route: 048
  5. FASLODEX [Suspect]
     Active Substance: FULVESTRANT
     Indication: Breast cancer female
     Route: 048
     Dates: start: 20240229
  6. CELECOXIB [Concomitant]
     Active Substance: CELECOXIB
     Dosage: 40 MG, 1X/DAY
     Route: 048
  7. NEXIUM I.V. [Concomitant]
     Active Substance: ESOMEPRAZOLE SODIUM
     Dosage: 40 MG, DAILY
     Route: 048
  8. METAMUCIL [Concomitant]
     Active Substance: PLANTAGO SEED
     Route: 048
  9. PROLIA [Concomitant]
     Active Substance: DENOSUMAB
     Route: 058
  10. ASCORBIC ACID\FERROUS FUMARATE [Concomitant]
     Active Substance: ASCORBIC ACID\FERROUS FUMARATE
  11. CALTRATE WITH VITAMIN D [Concomitant]
     Active Substance: CALCIUM CARBONATE\CHOLECALCIFEROL
  12. FULVESTRANT [Concomitant]
     Active Substance: FULVESTRANT

REACTIONS (8)
  - Malignant neoplasm progression [Not Recovered/Not Resolved]
  - Metastases to lung [Unknown]
  - Breast cancer recurrent [Unknown]
  - Neutropenia [Unknown]
  - Onychoclasis [Not Recovered/Not Resolved]
  - Hot flush [Unknown]
  - Stomatitis [Unknown]
  - Product prescribing error [Unknown]

NARRATIVE: CASE EVENT DATE: 20240301
